FAERS Safety Report 4496943-3 (Version None)
Quarter: 2004Q4

REPORT INFORMATION
  Report Type: 
  Country: None (occurrence: None)
  Receive Date: 20041109
  Receipt Date: 20041007
  Transmission Date: 20050328
  Serious: Yes (Life-Threatening, Hospitalization, Other)
  Sender: FDA-Public Use
  Company Number: US-MERCK-0410USA01206

PATIENT
  Age: 68 Year
  Sex: Male

DRUGS (13)
  1. VIOXX [Suspect]
     Indication: ARTHRITIS
     Route: 048
     Dates: start: 20040101, end: 20040801
  2. CELEBREX [Concomitant]
     Route: 065
  3. ALLEGRA [Concomitant]
     Route: 065
  4. PLAVIX [Concomitant]
     Route: 065
  5. BENAZEPRIL HYDROCHLORIDE [Concomitant]
     Route: 065
  6. [THERAPY UNSPECIFIED] [Concomitant]
     Route: 065
  7. MEVACOR [Concomitant]
     Route: 065
  8. TOPROL-XL [Concomitant]
     Route: 065
  9. ACTOS [Concomitant]
     Route: 065
  10. NORVASC [Concomitant]
     Route: 065
  11. ASPIRIN [Concomitant]
     Route: 065
  12. METFORMIN [Concomitant]
     Route: 065
  13. PROZAC [Concomitant]
     Route: 065

REACTIONS (5)
  - CHEST PAIN [None]
  - CORONARY ARTERY DISEASE [None]
  - DYSPNOEA [None]
  - PAIN IN EXTREMITY [None]
  - POST PROCEDURAL COMPLICATION [None]
